FAERS Safety Report 24638503 (Version 1)
Quarter: 2024Q4

REPORT INFORMATION
  Report Type: Report from Study
  Country: US (occurrence: US)
  Receive Date: 20241119
  Receipt Date: 20241119
  Transmission Date: 20250114
  Serious: Yes (Other)
  Sender: ABBVIE
  Company Number: US-ABBVIE-5983714

PATIENT
  Age: 40 Year
  Sex: Female

DRUGS (1)
  1. HUMIRA [Suspect]
     Active Substance: ADALIMUMAB
     Indication: Rheumatoid arthritis
     Dosage: CITRATE FREE
     Route: 058
     Dates: start: 20231103

REACTIONS (11)
  - Intervertebral disc protrusion [Unknown]
  - Post procedural complication [Unknown]
  - Pain [Unknown]
  - Spinal operation [Recovering/Resolving]
  - Nerve compression [Unknown]
  - Immune system disorder [Unknown]
  - Rheumatoid arthritis [Unknown]
  - Arthralgia [Unknown]
  - Gait inability [Unknown]
  - Intervertebral disc protrusion [Recovered/Resolved]
  - Monoparesis [Unknown]

NARRATIVE: CASE EVENT DATE: 20240605
